FAERS Safety Report 5853399-3 (Version None)
Quarter: 2008Q3

REPORT INFORMATION
  Report Type: 
  Country: None (occurrence: None)
  Receive Date: 20080821
  Receipt Date: 20080809
  Transmission Date: 20090109
  Serious: Yes (Other)
  Sender: FDA-Public Use
  Company Number: US-PFIZER INC-2008067101

PATIENT
  Age: 53 Year
  Sex: Female

DRUGS (6)
  1. GABAPENTIN [Suspect]
     Indication: NEURALGIA
     Dates: start: 20070101, end: 20080101
  2. LYRICA [Suspect]
     Indication: NEURALGIA
     Dates: start: 20080601, end: 20080101
  3. POTASSIUM CHLORIDE [Suspect]
     Route: 048
  4. FUROSEMIDE [Suspect]
     Route: 048
  5. LORTAB [Suspect]
  6. DARVOCET [Suspect]

REACTIONS (12)
  - ABNORMAL BEHAVIOUR [None]
  - BALANCE DISORDER [None]
  - COORDINATION ABNORMAL [None]
  - DISORIENTATION [None]
  - DRUG INEFFECTIVE [None]
  - DYSURIA [None]
  - FEELING DRUNK [None]
  - INCONTINENCE [None]
  - NERVE INJURY [None]
  - ROAD TRAFFIC ACCIDENT [None]
  - SWELLING [None]
  - WEIGHT INCREASED [None]
